FAERS Safety Report 5303009-9 (Version None)
Quarter: 2007Q2

REPORT INFORMATION
  Report Type: 
  Country: None (occurrence: None)
  Receive Date: 20070413
  Receipt Date: 20070409
  Transmission Date: 20071010
  Serious: Yes (Hospitalization)
  Sender: FDA-Public Use
  Company Number: 20073692

PATIENT
  Age: 46 Year
  Sex: Female

DRUGS (2)
  1. LIORESAL [Suspect]
     Indication: MUSCLE SPASTICITY
     Dosage: 100-700 MCG, DAILY; INTRATHECAL
     Route: 037
     Dates: start: 20060501, end: 20060728
  2. CYMBALTA (60 MG) AND WELLBUTRIN (100 MG) [Concomitant]

REACTIONS (13)
  - CATHETER RELATED COMPLICATION [None]
  - CHILLS [None]
  - DRUG INEFFECTIVE [None]
  - FLUSHING [None]
  - HOT FLUSH [None]
  - INCORRECT DOSE ADMINISTERED [None]
  - MALAISE [None]
  - MUSCLE SPASMS [None]
  - NIGHT SWEATS [None]
  - PRURITUS GENERALISED [None]
  - PYREXIA [None]
  - RESTLESSNESS [None]
  - TACHYCARDIA [None]
